FAERS Safety Report 6345574-9 (Version None)
Quarter: 2009Q3

REPORT INFORMATION
  Report Type: 
  Country: None (occurrence: None)
  Receive Date: 20090909
  Receipt Date: 20090828
  Transmission Date: 20100115
  Serious: Yes (Hospitalization, Other)
  Sender: FDA-Public Use
  Company Number: JP-PFIZER INC-2009239115

PATIENT
  Age: 84 Year

DRUGS (6)
  1. DALACIN [Suspect]
     Indication: PNEUMONIA ASPIRATION
     Dosage: 300 MG, 2X/DAY
     Route: 042
     Dates: start: 20090101, end: 20090708
  2. NITRODERM [Concomitant]
     Dosage: UNK
  3. IMIDAPRIL HYDROCHLORIDE [Concomitant]
     Route: 048
  4. LASIX [Concomitant]
     Route: 048
  5. PENTCILLIN [Concomitant]
     Route: 042
     Dates: start: 20090620, end: 20090623
  6. NITRODERM [Concomitant]
     Route: 062
     Dates: start: 20090619

REACTIONS (2)
  - RENAL IMPAIRMENT [None]
  - RHABDOMYOLYSIS [None]
